FAERS Safety Report 14704047 (Version 3)
Quarter: 2022Q1

REPORT INFORMATION
  Report Type: Spontaneous
  Country: US (occurrence: US)
  Receive Date: 20180402
  Receipt Date: 20220119
  Transmission Date: 20220423
  Serious: Yes (Hospitalization, Other)
  Sender: FDA-Public Use
  Company Number: US-AUROBINDO-AUR-APL-2018-017775

PATIENT
  Age: 33 Year
  Sex: Male

DRUGS (3)
  1. SEVELAMER CARBONATE [Suspect]
     Active Substance: SEVELAMER CARBONATE
     Indication: Hyperphosphataemia
     Dosage: 2400 MILLIGRAM, 3 TIMES A DAY
     Route: 048
  2. ASPIRIN [Concomitant]
     Active Substance: ASPIRIN
     Indication: Product used for unknown indication
     Dosage: UNK
     Route: 065
  3. CLOPIDOGREL [Concomitant]
     Active Substance: CLOPIDOGREL BISULFATE
     Indication: Product used for unknown indication
     Dosage: UNK
     Route: 065

REACTIONS (3)
  - Haematochezia [Recovered/Resolved]
  - Mucosal ulceration [Unknown]
  - Abdominal pain [Unknown]
